FAERS Safety Report 21177861 (Version 5)
Quarter: 2022Q4

REPORT INFORMATION
  Report Type: Spontaneous
  Country: US (occurrence: US)
  Receive Date: 20220805
  Receipt Date: 20221212
  Transmission Date: 20230112
  Serious: No
  Sender: FDA-Public Use
  Company Number: US-NOVARTISTESTPH-NVSC2022US177461

PATIENT
  Sex: Female

DRUGS (2)
  1. MEKINIST [Suspect]
     Active Substance: TRAMETINIB DIMETHYL SULFOXIDE
     Indication: Ovarian cancer
     Dosage: 2 MG, QD
     Route: 048
     Dates: start: 20220720
  2. MEKINIST [Suspect]
     Active Substance: TRAMETINIB DIMETHYL SULFOXIDE
     Dosage: 1.5 MG, QD
     Route: 048
     Dates: start: 202207

REACTIONS (9)
  - Cheilitis [Unknown]
  - Stomatitis [Recovered/Resolved]
  - Acne [Unknown]
  - Onychoclasis [Unknown]
  - Scab [Unknown]
  - Impaired healing [Unknown]
  - Fatigue [Unknown]
  - Tenderness [Unknown]
  - Product use in unapproved indication [Unknown]
